FAERS Safety Report 4690298-7 (Version None)
Quarter: 2005Q2

REPORT INFORMATION
  Report Type: 
  Country: None (occurrence: None)
  Receive Date: 20050615
  Receipt Date: 20050603
  Transmission Date: 20051028
  Serious: Yes (Other)
  Sender: FDA-Public Use
  Company Number: GB-GLAXOSMITHKLINE-B0383427A

PATIENT
  Sex: Female

DRUGS (1)
  1. VENTOLIN [Suspect]
     Route: 055

REACTIONS (3)
  - CHOKING [None]
  - FOREIGN BODY ASPIRATION [None]
  - PHARMACEUTICAL PRODUCT COMPLAINT [None]
